FAERS Safety Report 8240022-6 (Version None)
Quarter: 2012Q1

REPORT INFORMATION
  Report Type: 
  Country: None (occurrence: None)
  Receive Date: 20120328
  Receipt Date: 20120316
  Transmission Date: 20120608
  Serious: Yes (Disabling)
  Sender: FDA-Public Use
  Company Number: DK-NOVOPROD-342674

PATIENT
  Age: 7 Year
  Sex: Male
  Weight: 29 kg

DRUGS (4)
  1. ALDURAZYME [Concomitant]
     Indication: MUCOPOLYSACCHARIDOSIS I
  2. ATROVENT [Concomitant]
     Indication: RESPIRATORY DISORDER
  3. NORDITROPIN [Suspect]
     Indication: GROWTH HORMONE DEFICIENCY
     Dosage: 0.6 MG, QD
     Route: 058
     Dates: start: 20090501, end: 20100825
  4. FORADIL [Concomitant]
     Indication: RESPIRATORY DISORDER

REACTIONS (2)
  - ARTHRALGIA [None]
  - OSTEOCHONDROSIS [None]
